FAERS Safety Report 16126276 (Version 1)
Quarter: 2019Q1

REPORT INFORMATION
  Report Type: Report from Study
  Country: US (occurrence: US)
  Receive Date: 20190328
  Receipt Date: 20190328
  Transmission Date: 20190418
  Serious: Yes (Other)
  Sender: FDA-Public Use
  Company Number: US-SA-2017SA224390

PATIENT
  Age: 54 Year
  Sex: Female

DRUGS (3)
  1. LUMIZYME [Suspect]
     Active Substance: ALGLUCOSIDASE ALFA
     Dosage: UNK, FREQUENCY: Q2
     Dates: start: 20170810
  2. LUMIZYME [Suspect]
     Active Substance: ALGLUCOSIDASE ALFA
     Dosage: 1800; Q2
     Route: 041
     Dates: start: 20170817
  3. LUMIZYME [Suspect]
     Active Substance: ALGLUCOSIDASE ALFA
     Indication: GLYCOGEN STORAGE DISEASE TYPE II
     Dosage: UNK UNK,QOW
     Route: 041

REACTIONS (8)
  - Peripheral swelling [Recovered/Resolved]
  - Infusion site thrombosis [Unknown]
  - Hypertension [Recovered/Resolved]
  - Pneumonia [Unknown]
  - Bilevel positive airway pressure [Not Recovered/Not Resolved]
  - Tendon pain [Unknown]
  - Rash [Recovered/Resolved]
  - Dyspnoea [Unknown]
